FAERS Safety Report 13372297 (Version 1)
Quarter: 2017Q1

REPORT INFORMATION
  Report Type: Spontaneous
  Country: US (occurrence: US)
  Receive Date: 20170324
  Receipt Date: 20170324
  Transmission Date: 20170429
  Serious: No
  Sender: FDA-Public Use
  Company Number: None

PATIENT
  Age: 63 Year
  Sex: Female

DRUGS (1)
  1. CAPECITABINE 500 MG ACCORD HEALTHCARE [Suspect]
     Active Substance: CAPECITABINE
     Indication: BREAST CANCER FEMALE
     Dosage: 2000 MG TWICE DAILY BY MOUTH
     Route: 048
     Dates: start: 20170218, end: 20170321

REACTIONS (2)
  - Secretion discharge [None]
  - Blister [None]

NARRATIVE: CASE EVENT DATE: 20170307
